FAERS Safety Report 25500176 (Version 1)
Quarter: 2025Q3

REPORT INFORMATION
  Report Type: Spontaneous
  Country: US (occurrence: None)
  Receive Date: 20250701
  Receipt Date: 20250701
  Transmission Date: 20251021
  Serious: Yes (Life-Threatening, Hospitalization)
  Sender: FDA-CTU
  Company Number: None

PATIENT
  Age: 90 Year
  Sex: Female
  Weight: 65.25 kg

DRUGS (1)
  1. IBRANCE [Suspect]
     Active Substance: PALBOCICLIB
     Indication: Breast cancer

REACTIONS (4)
  - Interstitial lung disease [None]
  - Drug ineffective [None]
  - Oxygen saturation decreased [None]
  - Decreased activity [None]

NARRATIVE: CASE EVENT DATE: 20250503
